FAERS Safety Report 8128622-5 (Version None)
Quarter: 2012Q1

REPORT INFORMATION
  Report Type: 
  Country: None (occurrence: None)
  Receive Date: 20120210
  Receipt Date: 20111216
  Transmission Date: 20120608
  Serious: No
  Sender: FDA-Public Use
  Company Number: US-BRISTOL-MYERS SQUIBB COMPANY-16299414

PATIENT
  Sex: Female

DRUGS (2)
  1. STEROIDS [Concomitant]
     Dosage: STERIOD SHOTS
  2. ORENCIA [Suspect]
     Dosage: LAST INF:12DEC11 RECEIVING FOR 4 MONTHS
     Dates: start: 20110101

REACTIONS (2)
  - PAIN [None]
  - FEELING HOT [None]
